FAERS Safety Report 6623587-7 (Version None)
Quarter: 2010Q1

REPORT INFORMATION
  Report Type: 
  Country: None (occurrence: None)
  Receive Date: 20100310
  Receipt Date: 20091106
  Transmission Date: 20100710
  Serious: No
  Sender: FDA-Public Use
  Company Number: US-BIOGENIDEC-2009BI036063

PATIENT
  Age: 32 Year
  Sex: Female

DRUGS (2)
  1. AVONEX [Suspect]
     Indication: GENERAL SYMPTOM
     Route: 030
     Dates: start: 20090903, end: 20090924
  2. IBUPROFEN [Concomitant]
     Indication: PREMEDICATION
     Route: 048
     Dates: start: 20090903, end: 20090924

REACTIONS (7)
  - ARTHRALGIA [None]
  - DEPRESSION [None]
  - FATIGUE [None]
  - INFLUENZA LIKE ILLNESS [None]
  - INJECTION SITE PAIN [None]
  - PARAESTHESIA [None]
  - TEMPERATURE INTOLERANCE [None]
